FAERS Safety Report 17979893 (Version 31)
Quarter: 2022Q3

REPORT INFORMATION
  Report Type: Report from Study
  Country: US (occurrence: US)
  Receive Date: 20200703
  Receipt Date: 20220804
  Transmission Date: 20221026
  Serious: Yes (Hospitalization, Other)
  Sender: FDA-Public Use
  Company Number: NVSC2020US189107

PATIENT
  Age: 9 Month
  Sex: Female
  Weight: 8.68 kg

DRUGS (44)
  1. ZOLGENSMA [Suspect]
     Active Substance: ONASEMNOGENE ABEPARVOVEC-XIOI
     Indication: Spinal muscular atrophy
     Dosage: 49.5 ML, ONCE/SINGLE (1.1 X E14VG/KG)
     Route: 042
     Dates: start: 20200604
  2. PEPCID [Concomitant]
     Active Substance: FAMOTIDINE
     Indication: Prophylaxis
     Dosage: 4 MG, QD
     Route: 048
     Dates: start: 20200603, end: 20200610
  3. PEPCID [Concomitant]
     Active Substance: FAMOTIDINE
     Indication: Gastrointestinal disorder
     Dosage: 8 MG, QD
     Route: 048
     Dates: start: 20200611
  4. PEPCID [Concomitant]
     Active Substance: FAMOTIDINE
     Dosage: 5 MG, Q12H
     Route: 042
     Dates: start: 20200614, end: 20200614
  5. PEPCID [Concomitant]
     Active Substance: FAMOTIDINE
     Dosage: 0.5 MG/KG (4.2 MG), Q12H
     Route: 042
     Dates: start: 20200614, end: 20200614
  6. PEPCID [Concomitant]
     Active Substance: FAMOTIDINE
     Dosage: 4 MG, QD
     Route: 048
     Dates: start: 20200615, end: 20200615
  7. PEPCID [Concomitant]
     Active Substance: FAMOTIDINE
     Dosage: 8 MG, QD
     Route: 048
     Dates: start: 20200615
  8. GLYCERIN [Concomitant]
     Active Substance: GLYCERIN
     Indication: Product used for unknown indication
     Dosage: 0.5 DF, ONCE/SINGLE
     Route: 054
     Dates: start: 20200618, end: 20200618
  9. PROCARDIA [Concomitant]
     Active Substance: NIFEDIPINE
     Indication: Product used for unknown indication
     Dosage: 0.25 MG/KG (2.12 MG), Q4H
     Route: 048
     Dates: start: 20200615
  10. PROCARDIA [Concomitant]
     Active Substance: NIFEDIPINE
     Dosage: 5 MG, ONCE/SINGLE
     Route: 048
     Dates: start: 20200618, end: 20200618
  11. PROCARDIA [Concomitant]
     Active Substance: NIFEDIPINE
     Dosage: 5 MG, ONCE/SINGLE
     Route: 048
     Dates: start: 20200618, end: 20200619
  12. PROCARDIA [Concomitant]
     Active Substance: NIFEDIPINE
     Dosage: 5 MG, Q4H
     Route: 048
     Dates: start: 20200619
  13. SMOFLIPID [Concomitant]
     Active Substance: FISH OIL\MEDIUM-CHAIN TRIGLYCERIDES\OLIVE OIL\SOYBEAN OIL
     Indication: Fatty acid deficiency
     Dosage: 1 G/KG, CONT (TPN AT 1.5 ML/HR)
     Route: 042
     Dates: start: 20200614, end: 20200614
  14. SMOFLIPID [Concomitant]
     Active Substance: FISH OIL\MEDIUM-CHAIN TRIGLYCERIDES\OLIVE OIL\SOYBEAN OIL
     Dosage: 1 G/KG, CONT (TPN AT 2.3 ML/HR)
     Route: 042
     Dates: start: 20200614, end: 20200614
  15. SMOFLIPID [Concomitant]
     Active Substance: FISH OIL\MEDIUM-CHAIN TRIGLYCERIDES\OLIVE OIL\SOYBEAN OIL
     Dosage: 1 G/KG, CONT (TPN AT 1.8 ML/HR)
     Route: 042
     Dates: start: 20200614, end: 20200614
  16. SMOFLIPID [Concomitant]
     Active Substance: FISH OIL\MEDIUM-CHAIN TRIGLYCERIDES\OLIVE OIL\SOYBEAN OIL
     Dosage: 1 G/KG, CONT (TPN AT 1.8 ML/HR)
     Route: 042
     Dates: start: 20200614, end: 20200614
  17. SMOFLIPID [Concomitant]
     Active Substance: FISH OIL\MEDIUM-CHAIN TRIGLYCERIDES\OLIVE OIL\SOYBEAN OIL
     Dosage: 1 G/KG, CONT (TPN AT 1.8 ML/HR)
     Route: 042
     Dates: start: 20200614, end: 20200615
  18. SMOFLIPID [Concomitant]
     Active Substance: FISH OIL\MEDIUM-CHAIN TRIGLYCERIDES\OLIVE OIL\SOYBEAN OIL
     Dosage: 1 G/KG, CONT (TPN AT 1.8 ML/HR)
     Route: 042
     Dates: start: 20200615, end: 20200615
  19. SMOFLIPID [Concomitant]
     Active Substance: FISH OIL\MEDIUM-CHAIN TRIGLYCERIDES\OLIVE OIL\SOYBEAN OIL
     Dosage: 1 G/KG, CONT (TPN AT 1.8 ML/HR)
     Route: 042
     Dates: start: 20200615, end: 20200616
  20. SMOFLIPID [Concomitant]
     Active Substance: FISH OIL\MEDIUM-CHAIN TRIGLYCERIDES\OLIVE OIL\SOYBEAN OIL
     Dosage: 1 G/KG, CONT (TPN AT 1.77 ML/HR)
     Route: 042
     Dates: start: 20200616, end: 20200617
  21. SMOFLIPID [Concomitant]
     Active Substance: FISH OIL\MEDIUM-CHAIN TRIGLYCERIDES\OLIVE OIL\SOYBEAN OIL
     Dosage: 1 G/KG, CONT (TPN AT 1.77 ML/HR)
     Route: 042
     Dates: start: 20200617, end: 20200618
  22. SMOFLIPID [Concomitant]
     Active Substance: FISH OIL\MEDIUM-CHAIN TRIGLYCERIDES\OLIVE OIL\SOYBEAN OIL
     Dosage: 1 G/KG, CONT (TPN AT 1.77 ML/HR)
     Route: 042
     Dates: start: 20200618, end: 20200619
  23. VEETIDS [Concomitant]
     Active Substance: PENICILLIN V POTASSIUM
     Indication: Prophylaxis
     Dosage: 125 MG, BID
     Route: 048
     Dates: start: 20200623
  24. MIRALAX [Concomitant]
     Active Substance: POLYETHYLENE GLYCOL 3350
     Indication: Constipation
     Dosage: 8.5 G, PRN
     Route: 048
     Dates: start: 20200614, end: 20200617
  25. MIRALAX [Concomitant]
     Active Substance: POLYETHYLENE GLYCOL 3350
     Dosage: 8.5 G, BID
     Route: 048
     Dates: start: 20200617, end: 20200621
  26. MIRALAX [Concomitant]
     Active Substance: POLYETHYLENE GLYCOL 3350
     Dosage: 4.25 G, BID
     Route: 048
     Dates: start: 20200621
  27. DELTASONE [Concomitant]
     Active Substance: PREDNISONE
     Indication: Product used for unknown indication
     Dosage: 20 MG, Q24H
     Route: 048
     Dates: start: 20200622, end: 20200623
  28. LIDOCAINE [Concomitant]
     Active Substance: LIDOCAINE
     Indication: Product used for unknown indication
     Dosage: 0.1 ML (BUFFERED INJECTION), PRN
     Route: 042
     Dates: start: 20200614
  29. DEXTROSE AND SODIUM CHLORIDE [Concomitant]
     Active Substance: DEXTROSE MONOHYDRATE\SODIUM CHLORIDE
     Indication: Product used for unknown indication
     Dosage: 10 ML/HR (DEXTROSE 0.5% AND SODIUM CHLORIDE 0.45%), CONT
     Route: 042
     Dates: start: 20200614, end: 20200614
  30. DEXTROSE AND SODIUM CHLORIDE [Concomitant]
     Active Substance: DEXTROSE MONOHYDRATE\SODIUM CHLORIDE
     Dosage: 3 ML/HR (DEXTROSE 0.5% AND SODIUM CHLORIDE 0.45%), CONT
     Route: 042
     Dates: start: 20200614, end: 20200614
  31. DEXTROSE AND SODIUM CHLORIDE [Concomitant]
     Active Substance: DEXTROSE MONOHYDRATE\SODIUM CHLORIDE
     Dosage: 3 ML/HR (DEXTROSE 0.5% AND SODIUM CHLORIDE 0.45%), CONT
     Route: 042
     Dates: start: 20200614, end: 20200614
  32. DEXTROSE AND SODIUM CHLORIDE [Concomitant]
     Active Substance: DEXTROSE MONOHYDRATE\SODIUM CHLORIDE
     Dosage: 3 ML/HR (DEXTROSE 0.5% AND SODIUM CHLORIDE 0.45%), CONT
     Route: 042
     Dates: start: 20200614, end: 20200619
  33. AQUAPHOR OINTMENT [Concomitant]
     Active Substance: ALCOHOL\LIGHT MINERAL OIL\PETROLATUM
     Indication: Dry skin
     Dosage: 1 APPLICATION, PRN
     Route: 061
     Dates: start: 20200614
  34. MENVEO [Concomitant]
     Active Substance: NEISSERIA MENINGITIDIS GROUP A CAPSULAR OLIGOSACCHARIDE DIPHTHERIA CRM197 PROTEIN CONJUGATE ANTIGEN\
     Indication: Immunisation
     Dosage: 0.5 ML (10-5 MCG/0.5 ML), DURING HOSPITALIZATION
     Route: 030
     Dates: start: 20200622, end: 20200622
  35. BEXSERO [Concomitant]
     Active Substance: NEISSERIA MENINGITIDIS GROUP B FHBP FUSION PROTEIN ANTIGEN\NEISSERIA MENINGITIDIS GROUP B NADA PROTE
     Indication: Immunisation
     Dosage: 0.5 ML (50-50-50-25 MCG/0.5 ML), DURING HOSPITALIZATION
     Route: 030
     Dates: start: 20200622, end: 20200622
  36. TYLENOL [Concomitant]
     Active Substance: ACETAMINOPHEN
     Indication: Product used for unknown indication
     Dosage: 15 MG/KG, ONCE/SINGLE
     Route: 048
     Dates: start: 20200623, end: 20200623
  37. TYLENOL [Concomitant]
     Active Substance: ACETAMINOPHEN
     Dosage: 15 MG/KG, ONCE/SINGLE
     Route: 048
     Dates: start: 20200623, end: 20200623
  38. LASIX [Concomitant]
     Active Substance: FUROSEMIDE
     Indication: Hypervolaemia
     Dosage: 1 MG/KG (8.5 MG), ONCE/SINGLE
     Route: 042
     Dates: start: 20200614, end: 20200614
  39. LASIX [Concomitant]
     Active Substance: FUROSEMIDE
     Dosage: 1 MG/KG (8.5 MG), ONCE/SINGLE
     Route: 042
     Dates: start: 20200614, end: 20200614
  40. OCEAN SALINE NASAL SPRAY [Concomitant]
     Active Substance: SODIUM CHLORIDE
     Indication: Product used for unknown indication
     Dosage: 1 DF, QH (FOR BIPAP)
     Route: 006
     Dates: start: 20200614
  41. AMOXICILLIN [Concomitant]
     Active Substance: AMOXICILLIN
     Indication: Prophylaxis
     Dosage: 1.1 ML, BID
     Route: 065
  42. ECULIZUMAB [Concomitant]
     Active Substance: ECULIZUMAB
     Indication: Product used for unknown indication
     Dosage: UNK
     Route: 065
  43. CYTRA-K [Concomitant]
     Active Substance: CITRIC ACID MONOHYDRATE\POTASSIUM CITRATE
     Indication: Product used for unknown indication
     Dosage: 2 ML, TID
     Route: 065
  44. ACETAMINOPHEN [Concomitant]
     Active Substance: ACETAMINOPHEN
     Indication: Product used for unknown indication
     Dosage: UNK
     Route: 065

REACTIONS (31)
  - Thrombotic microangiopathy [Recovered/Resolved]
  - Thrombocytopenia [Recovered/Resolved]
  - Atypical haemolytic uraemic syndrome [Recovered/Resolved]
  - Escherichia urinary tract infection [Recovered/Resolved]
  - Nephrotic syndrome [Recovering/Resolving]
  - Proteinuria [Recovering/Resolving]
  - Haemolytic anaemia [Recovered/Resolved]
  - Hypertensive crisis [Recovered/Resolved]
  - Dehydration [Recovered/Resolved]
  - Dehydration [Recovered/Resolved]
  - Vomiting [Recovered/Resolved]
  - Hypoglycaemia [Recovered/Resolved]
  - Irritability [Recovered/Resolved]
  - Hypertension [Not Recovered/Not Resolved]
  - Nausea [Unknown]
  - Retching [Unknown]
  - Haematuria [Recovered/Resolved]
  - Oedema peripheral [Recovered/Resolved]
  - Periorbital oedema [Recovered/Resolved]
  - Cold sweat [Recovered/Resolved]
  - Normochromic normocytic anaemia [Recovered/Resolved]
  - Cellulitis [Recovered/Resolved]
  - Hyperkalaemia [Recovered/Resolved]
  - Alanine aminotransferase increased [Recovered/Resolved]
  - Aspartate aminotransferase increased [Recovered/Resolved]
  - Troponin I increased [Recovered/Resolved]
  - Myelocyte count increased [Recovered/Resolved]
  - Carbon dioxide decreased [Recovered/Resolved]
  - Selective eating disorder [Not Recovered/Not Resolved]
  - Gastrostomy tube site complication [Recovered/Resolved]
  - Excessive granulation tissue [Recovered/Resolved]

NARRATIVE: CASE EVENT DATE: 20200605
